FAERS Safety Report 20770787 (Version 1)
Quarter: 2022Q2

REPORT INFORMATION
  Report Type: Spontaneous
  Country: US (occurrence: US)
  Receive Date: 20220429
  Receipt Date: 20220429
  Transmission Date: 20220720
  Serious: Yes (Other)
  Sender: FDA-Public Use
  Company Number: US-PFIZER INC-202200626518

PATIENT
  Age: 77 Year
  Sex: Male

DRUGS (1)
  1. VYNDAMAX [Suspect]
     Active Substance: TAFAMIDIS
     Dosage: 61 MG

REACTIONS (7)
  - Bendopnoea [Unknown]
  - Neuropathy peripheral [Not Recovered/Not Resolved]
  - Fluid retention [Unknown]
  - Peripheral coldness [Unknown]
  - Intermittent claudication [Unknown]
  - Muscle spasms [Unknown]
  - Pica [Unknown]
